FAERS Safety Report 21601336 (Version 2)
Quarter: 2023Q1

REPORT INFORMATION
  Report Type: Report from Study
  Country: US (occurrence: US)
  Receive Date: 20221116
  Receipt Date: 20230102
  Transmission Date: 20230418
  Serious: No
  Sender: FDA-Public Use
  Company Number: US-ABBVIE-4202501

PATIENT
  Age: 66 Year
  Sex: Female

DRUGS (1)
  1. RINVOQ [Suspect]
     Active Substance: UPADACITINIB
     Indication: Rheumatoid arthritis
     Dosage: ER, FORM STRENGTH 15 MILLIGRAM
     Route: 048
     Dates: start: 20220629, end: 20221119

REACTIONS (12)
  - Spleen disorder [Unknown]
  - Anaemia [Unknown]
  - Splenic lesion [Unknown]
  - Abdominal pain [Unknown]
  - Constipation [Unknown]
  - Feeling abnormal [Unknown]
  - White blood cell count decreased [Unknown]
  - Dizziness [Unknown]
  - Hot flush [Unknown]
  - Hyperchromasia [Unknown]
  - Headache [Unknown]
  - Macrocytosis [Unknown]

NARRATIVE: CASE EVENT DATE: 20221101
